FAERS Safety Report 8095057-3 (Version None)
Quarter: 2011Q4

REPORT INFORMATION
  Report Type: 
  Country: None (occurrence: None)
  Receive Date: 20111222
  Receipt Date: 20111121
  Transmission Date: 20120403
  Serious: Yes (Death, Hospitalization)
  Sender: FDA-Public Use
  Company Number: UTC-011734

PATIENT
  Age: 72 Year
  Sex: Female
  Weight: 98.6 kg

DRUGS (3)
  1. TYVASO [Suspect]
     Indication: PULMONARY ARTERIAL HYPERTENSION
     Dosage: 120 MCG (30 MCG, 4 IN 1 D), INHALATION
     Route: 055
     Dates: start: 20111012
  2. COUMADIN [Concomitant]
  3. REVATIO [Concomitant]

REACTIONS (3)
  - OXYGEN SATURATION DECREASED [None]
  - OEDEMA [None]
  - DYSPNOEA [None]
